FAERS Safety Report 6767198-1 (Version None)
Quarter: 2010Q2

REPORT INFORMATION
  Report Type: 
  Country: None (occurrence: None)
  Receive Date: 20100614
  Receipt Date: 20100531
  Transmission Date: 20101027
  Serious: Yes (Death)
  Sender: FDA-Public Use
  Company Number: NO-RANBAXY-2010RR-32701

PATIENT
  Sex: Male

DRUGS (19)
  1. SANDIMMUNE [Interacting]
     Indication: RENAL TRANSPLANT
     Dosage: 75 MG, 1+1
     Route: 048
  2. SIMVASTATIN [Suspect]
     Indication: HYPERCHOLESTEROLAEMIA
     Dosage: 80 MG EVENING
     Route: 048
     Dates: start: 20070917, end: 20071006
  3. FLAGYL [Concomitant]
     Indication: CLOSTRIDIUM DIFFICILE COLITIS
     Dosage: 400 MG , 1+1+0+1
     Dates: start: 20070901, end: 20071001
  4. TRIATEC [Concomitant]
     Dates: end: 20070927
  5. SODIUM BICARBONATE [Concomitant]
     Indication: METABOLIC ACIDOSIS
     Dates: start: 20071001
  6. FUROSEMIDE [Concomitant]
     Dosage: 120 MG MORNING
     Dates: end: 20071001
  7. ALBYL-E [Concomitant]
     Dosage: 75 MG MORNING
     Route: 048
  8. TITRALAC [Concomitant]
     Dates: start: 20071007
  9. SELO-ZOK [Concomitant]
     Dosage: 50 MG MORNING
     Route: 048
  10. ZYLORIC [Concomitant]
     Dosage: 100 MG MORNING
     Route: 048
  11. NYCOPLUS FERRO-RETARD [Concomitant]
     Dosage: 100 MG MORNING
     Route: 048
  12. PREDNISOLONE [Concomitant]
     Dosage: 5 MG MORNING
     Route: 048
  13. DIURAL [Concomitant]
     Dosage: DOSE REDUSED TO 125 MG X 1 FROM 20071006
     Dates: start: 20071001
  14. SOLU-CORTEF [Concomitant]
     Route: 042
     Dates: end: 20070929
  15. ZINACEF [Concomitant]
     Dates: start: 20070901, end: 20070901
  16. ETALPHA [Concomitant]
     Dosage: 0,25 MG MORNING
  17. VANCOMYCIN [Concomitant]
     Dates: start: 20070929, end: 20071008
  18. FRAGMIN [Concomitant]
     Route: 058
     Dates: start: 20071007, end: 20071009
  19. ARANESP [Concomitant]
     Dosage: 20071001, 20071005 AND 20071008
     Route: 051

REACTIONS (5)
  - DEATH [None]
  - DRUG INTERACTION [None]
  - MYOPATHY [None]
  - RENAL FAILURE ACUTE [None]
  - RHABDOMYOLYSIS [None]
